FAERS Safety Report 9049127 (Version 1)
Quarter: 2013Q1

REPORT INFORMATION
  Report Type: Spontaneous
  Country: US (occurrence: US)
  Receive Date: 20130205
  Receipt Date: 20130205
  Transmission Date: 20140127
  Serious: No
  Sender: FDA-Public Use
  Company Number: US-PFIZER INC-2013044700

PATIENT
  Age: 77 Year
  Sex: Male
  Weight: 72.56 kg

DRUGS (9)
  1. VIAGRA [Suspect]
     Indication: ERECTILE DYSFUNCTION
     Dosage: 100 MG, AS NEEDED
     Route: 048
     Dates: end: 201301
  2. PRILOSEC [Concomitant]
     Dosage: UNK, DAILY
  3. ALLOPURINOL [Concomitant]
     Dosage: 300 MG, DAILY
  4. CARVEDILOL [Concomitant]
     Dosage: 12.5 MG, DAILY
     Dates: start: 201212
  5. BENICAR [Concomitant]
     Dosage: 20 MG, DAILY
  6. ASPIRIN [Concomitant]
     Dosage: 350 MG, DAILY
  7. VITAMIN D [Concomitant]
     Dosage: UNK, DAILY
  8. MELOXICAM [Concomitant]
     Dosage: 7.5 MG, DAILY
  9. VITAMIN C [Concomitant]
     Dosage: 500 MG, DAILY

REACTIONS (1)
  - Drug ineffective [Unknown]
